FAERS Safety Report 7600775-4 (Version None)
Quarter: 2011Q3

REPORT INFORMATION
  Report Type: 
  Country: None (occurrence: None)
  Receive Date: 20110711
  Receipt Date: 20110627
  Transmission Date: 20111222
  Serious: Yes (Other)
  Sender: FDA-Public Use
  Company Number: IT-GENENTECH-321005

PATIENT
  Age: 12 Month
  Sex: Female

DRUGS (22)
  1. DEXAMETHASONE [Suspect]
     Indication: EPSTEIN-BARR VIRUS ASSOCIATED LYMPHOPROLIFERATIVE DISORDER
     Dosage: UNK
     Route: 065
  2. METHYLPREDNISOLONE [Suspect]
     Dosage: UNK
     Route: 037
  3. DAUNORUBICIN HCL [Suspect]
     Indication: EPSTEIN-BARR VIRUS ASSOCIATED LYMPHOPROLIFERATIVE DISORDER
     Dosage: UNK
     Route: 065
  4. CYCLOPHOSPHAMIDE [Suspect]
     Indication: EPSTEIN-BARR VIRUS ASSOCIATED LYMPHOPROLIFERATIVE DISORDER
     Dosage: 750 MG/M2, Q4W
     Route: 042
  5. METHOTREXATE [Suspect]
     Indication: EPSTEIN-BARR VIRUS ASSOCIATED LYMPHOPROLIFERATIVE DISORDER
     Dosage: UNK
     Route: 065
  6. ETOPOSIDE [Suspect]
     Indication: EPSTEIN-BARR VIRUS ASSOCIATED LYMPHOPROLIFERATIVE DISORDER
     Dosage: UNK
     Route: 065
  7. FLUDARABINE PHOSPHATE [Suspect]
     Indication: EPSTEIN-BARR VIRUS ASSOCIATED LYMPHOPROLIFERATIVE DISORDER
     Dosage: 30 MG/M2, Q4W
     Route: 042
  8. CYCLOPHOSPHAMIDE [Suspect]
     Dosage: UNK
     Route: 042
  9. VINCRISTINE [Suspect]
     Dosage: 1.5 MG/M2, UNK
     Route: 065
  10. CYTARABINE [Suspect]
     Dosage: UNK
     Route: 065
  11. METHYLPREDNISOLONE [Suspect]
     Indication: PROPHYLAXIS
     Dosage: UNK
     Route: 037
  12. RITUXIMAB [Suspect]
     Dosage: UNK
     Route: 042
  13. METHOTREXATE [Suspect]
     Dosage: UNK
     Route: 065
  14. CYTARABINE [Suspect]
     Indication: EPSTEIN-BARR VIRUS ASSOCIATED LYMPHOPROLIFERATIVE DISORDER
     Dosage: UNK
     Route: 065
  15. DOXORUBICIN HCL [Suspect]
     Indication: EPSTEIN-BARR VIRUS ASSOCIATED LYMPHOPROLIFERATIVE DISORDER
     Dosage: 30 MG/M2, Q4W
     Route: 042
  16. IFOSFAMIDE [Suspect]
     Indication: EPSTEIN-BARR VIRUS ASSOCIATED LYMPHOPROLIFERATIVE DISORDER
     Dosage: UNK
     Route: 065
  17. DEXAMETHASONE [Suspect]
     Dosage: UNK
     Route: 065
  18. RITUXIMAB [Suspect]
     Indication: EPSTEIN-BARR VIRUS ASSOCIATED LYMPHOPROLIFERATIVE DISORDER
     Dosage: 375 MG/M2, Q4W
     Route: 042
  19. METHOTREXATE [Suspect]
     Dosage: UNK
     Route: 065
  20. METHOTREXATE [Suspect]
     Dosage: UNK
     Route: 065
  21. VINCRISTINE [Suspect]
     Indication: EPSTEIN-BARR VIRUS ASSOCIATED LYMPHOPROLIFERATIVE DISORDER
     Dosage: 1.5 MG/M2, UNK
     Route: 065
  22. CYTARABINE [Suspect]
     Dosage: UNK
     Route: 065

REACTIONS (2)
  - HAEMATOTOXICITY [None]
  - NEUTROPENIA [None]
